FAERS Safety Report 23348730 (Version 2)
Quarter: 2024Q2

REPORT INFORMATION
  Report Type: Report from Study
  Country: US (occurrence: US)
  Receive Date: 20231229
  Receipt Date: 20240515
  Transmission Date: 20240716
  Serious: No
  Sender: FDA-Public Use
  Company Number: US-SA-SAC20231222001073

PATIENT
  Age: 25 Year
  Sex: Male

DRUGS (2)
  1. DUPILUMAB [Suspect]
     Active Substance: DUPILUMAB
     Indication: Sinus polyp
     Dosage: 1 DF, QOW
     Route: 058
  2. DUPILUMAB [Suspect]
     Active Substance: DUPILUMAB
     Indication: Nasal polyps

REACTIONS (8)
  - Injection site vesicles [Unknown]
  - Injection site induration [Unknown]
  - Injection site pain [Unknown]
  - Injection site swelling [Unknown]
  - Ocular hyperaemia [Not Recovered/Not Resolved]
  - Dry eye [Unknown]
  - Eye irritation [Unknown]
  - Product use in unapproved indication [Unknown]

NARRATIVE: CASE EVENT DATE: 20240101
